FAERS Safety Report 16898573 (Version 1)
Quarter: 2019Q4

REPORT INFORMATION
  Report Type: Spontaneous
  Country: JP (occurrence: JP)
  Receive Date: 20191009
  Receipt Date: 20191009
  Transmission Date: 20200122
  Serious: Yes (Other)
  Sender: FDA-Public Use
  Company Number: JP-FRESENIUS KABI-FK201910940

PATIENT
  Age: 2 Month
  Sex: Female
  Weight: 2.72 kg

DRUGS (3)
  1. AMIODARONE HCL (MANUFACTURER UNKNOWN) [Suspect]
     Active Substance: AMIODARONE HYDROCHLORIDE
     Indication: WOLFF-PARKINSON-WHITE SYNDROME
     Route: 065
  2. FLECAINIDE [Suspect]
     Active Substance: FLECAINIDE
     Indication: WOLFF-PARKINSON-WHITE SYNDROME
     Route: 065
  3. DIGOXIN. [Suspect]
     Active Substance: DIGOXIN
     Indication: WOLFF-PARKINSON-WHITE SYNDROME
     Dosage: 0,01 MG/KG
     Route: 065

REACTIONS (2)
  - Left ventricular dysfunction [Not Recovered/Not Resolved]
  - Torsade de pointes [Recovered/Resolved]
